FAERS Safety Report 8612519-8 (Version None)
Quarter: 2012Q3

REPORT INFORMATION
  Report Type: 
  Country: None (occurrence: None)
  Receive Date: 20120822
  Receipt Date: 20111003
  Transmission Date: 20120928
  Serious: No
  Sender: FDA-Public Use
  Company Number: US-ASTRAZENECA-2011SE59462

PATIENT
  Sex: Male

DRUGS (2)
  1. LORADAPINE [Concomitant]
     Indication: ANTIALLERGIC THERAPY
  2. SYMBICORT [Suspect]
     Indication: NASOPHARYNGITIS
     Dosage: 80 MCG/4.5 1 PUFF BID
     Route: 055

REACTIONS (2)
  - BRONCHITIS [None]
  - OFF LABEL USE [None]
